FAERS Safety Report 10391118 (Version 1)
Quarter: 2014Q3

REPORT INFORMATION
  Report Type: Spontaneous
  Country: JP (occurrence: JP)
  Receive Date: 20140818
  Receipt Date: 20140818
  Transmission Date: 20150326
  Serious: Yes (Other)
  Sender: FDA-Public Use
  Company Number: JP-GLAXOSMITHKLINE-B1024063A

PATIENT
  Sex: Female

DRUGS (3)
  1. DEANOSART [Concomitant]
     Indication: MENIERE^S DISEASE
     Route: 048
  2. VOTRIENT [Suspect]
     Active Substance: PAZOPANIB HYDROCHLORIDE
     Indication: PRODUCT USED FOR UNKNOWN INDICATION
     Route: 048
  3. DIFENIDOL HYDROCHLORIDE [Concomitant]
     Indication: MENIERE^S DISEASE
     Route: 048

REACTIONS (4)
  - Diarrhoea [Unknown]
  - Meniere^s disease [Unknown]
  - Fatigue [Unknown]
  - Abdominal discomfort [Unknown]
